FAERS Safety Report 4638818-2 (Version None)
Quarter: 2005Q2

REPORT INFORMATION
  Report Type: 
  Country: None (occurrence: None)
  Receive Date: 20050328
  Receipt Date: 20050222
  Transmission Date: 20051028
  Serious: No
  Sender: FDA-Public Use
  Company Number: USA050291515

PATIENT
  Age: 39 Year
  Sex: Male

DRUGS (2)
  1. STRATTERA [Suspect]
     Indication: ATTENTION DEFICIT/HYPERACTIVITY DISORDER
     Dosage: 40 MG IN THE MORNING
     Dates: start: 20040701, end: 20040704
  2. WELLBUTRIN SR [Concomitant]

REACTIONS (5)
  - DIABETES MELLITUS NON-INSULIN-DEPENDENT [None]
  - FATIGUE [None]
  - HEADACHE [None]
  - PYREXIA [None]
  - SOMNOLENCE [None]
